FAERS Safety Report 5350498-X (Version None)
Quarter: 2007Q2

REPORT INFORMATION
  Report Type: 
  Country: None (occurrence: None)
  Receive Date: 20070606
  Receipt Date: 20070606
  Transmission Date: 20071010
  Serious: Yes (Other)
  Sender: FDA-Public Use
  Company Number: None

PATIENT
  Age: 32 Year
  Sex: Male

DRUGS (1)
  1. HYDROGEN PEROXIDE SOLUTION [Suspect]
     Dosage: DENTAL
     Route: 004

REACTIONS (3)
  - DYSURIA [None]
  - MICTURITION URGENCY [None]
  - URINARY INCONTINENCE [None]
